FAERS Safety Report 6005347-3 (Version None)
Quarter: 2008Q4

REPORT INFORMATION
  Report Type: 
  Country: None (occurrence: None)
  Receive Date: 20081216
  Receipt Date: 20081208
  Transmission Date: 20090506
  Serious: Yes (Other)
  Sender: FDA-Public Use
  Company Number: US-GENENTECH-273775

PATIENT

DRUGS (2)
  1. AVASTIN [Suspect]
     Indication: COLORECTAL CANCER
  2. CHEMOTHERAPY (UNK INGREDIENTS) [Concomitant]
     Indication: COLORECTAL CANCER

REACTIONS (1)
  - SMALL INTESTINAL OBSTRUCTION [None]
